FAERS Safety Report 9084735 (Version 1)
Quarter: 2013Q1

REPORT INFORMATION
  Report Type: Report from Study
  Country: US (occurrence: US)
  Receive Date: 20130131
  Receipt Date: 20130131
  Transmission Date: 20140127
  Serious: No
  Sender: FDA-Public Use
  Company Number: US-ABBOTT-12P-163-1001766-00

PATIENT
  Sex: Female
  Weight: 63.56 kg

DRUGS (4)
  1. HUMIRA [Suspect]
     Indication: CROHN^S DISEASE
     Route: 058
     Dates: start: 201208, end: 201208
  2. HUMIRA [Suspect]
     Route: 058
     Dates: start: 201209
  3. SOLUCORTEF [Suspect]
     Indication: CROHN^S DISEASE
     Route: 041
     Dates: start: 20120605
  4. PREDNISONE [Suspect]
     Indication: PRODUCT USED FOR UNKNOWN INDICATION
     Dosage: LARGES DOSES; TAPER
     Route: 048
     Dates: end: 201208

REACTIONS (2)
  - Alopecia [Not Recovered/Not Resolved]
  - Injection site pain [Not Recovered/Not Resolved]
